FAERS Safety Report 8591206-9 (Version None)
Quarter: 2012Q3

REPORT INFORMATION
  Report Type: 
  Country: None (occurrence: None)
  Receive Date: 20120813
  Receipt Date: 20120803
  Transmission Date: 20120928
  Serious: Yes (Hospitalization, Other)
  Sender: FDA-Public Use
  Company Number: US-RB-042565-12

PATIENT
  Age: 34 Year
  Sex: Female

DRUGS (3)
  1. BUPRENORPHINE [Suspect]
     Indication: PRODUCT USED FOR UNKNOWN INDICATION
     Dosage: UNIT DOSE UNKNOWN
     Route: 065
  2. SUBOXONE [Suspect]
     Indication: PRODUCT USED FOR UNKNOWN INDICATION
     Dosage: 12-16 MG DAILY
     Route: 060
  3. SUBOXONE [Suspect]
     Indication: PRODUCT USED FOR UNKNOWN INDICATION
     Dosage: SUBOXONE FILM: UNIT DOSE UNKNOWN
     Route: 060

REACTIONS (11)
  - OEDEMA PERIPHERAL [None]
  - MUSCULOSKELETAL STIFFNESS [None]
  - DIZZINESS [None]
  - WEIGHT INCREASED [None]
  - BRAIN OEDEMA [None]
  - DIPLOPIA [None]
  - INTRACRANIAL PRESSURE INCREASED [None]
  - FLUID RETENTION [None]
  - ARTHRALGIA [None]
  - HEPATITIS C [None]
  - FATIGUE [None]
